FAERS Safety Report 19752384 (Version 1)
Quarter: 2021Q3

REPORT INFORMATION
  Report Type: Spontaneous
  Country: JP (occurrence: JP)
  Receive Date: 20210827
  Receipt Date: 20210827
  Transmission Date: 20211014
  Serious: Yes (Other)
  Sender: FDA-Public Use
  Company Number: JP-ALK-ABELLO A/S-2021AA001209

PATIENT

DRUGS (2)
  1. MITICURE [Suspect]
     Active Substance: DERMATOPHAGOIDES FARINAE\DERMATOPHAGOIDES PTERONYSSINUS
     Indication: PRODUCT USED FOR UNKNOWN INDICATION
     Dosage: 3300 JAU
     Route: 060
  2. MITICURE [Suspect]
     Active Substance: DERMATOPHAGOIDES FARINAE\DERMATOPHAGOIDES PTERONYSSINUS
     Dosage: 10000 JAU
     Route: 060

REACTIONS (2)
  - Dyspnoea [Unknown]
  - Angioedema [Unknown]
